FAERS Safety Report 12820464 (Version 1)
Quarter: 2016Q4

REPORT INFORMATION
  Report Type: Spontaneous
  Country: JP (occurrence: JP)
  Receive Date: 20161006
  Receipt Date: 20161006
  Transmission Date: 20170207
  Serious: Yes (Death)
  Sender: FDA-Public Use
  Company Number: JP-PFIZER INC-2016463814

PATIENT
  Age: 80 Year

DRUGS (2)
  1. VFEND [Suspect]
     Active Substance: VORICONAZOLE
     Indication: BLOOD BETA-D-GLUCAN INCREASED
  2. VFEND [Suspect]
     Active Substance: VORICONAZOLE
     Indication: ASPERGILLUS INFECTION
     Dosage: 300 MG, DAILY
     Route: 041
     Dates: start: 20160926

REACTIONS (1)
  - Death [Fatal]

NARRATIVE: CASE EVENT DATE: 20160926
